FAERS Safety Report 8537004-3 (Version None)
Quarter: 2012Q3

REPORT INFORMATION
  Report Type: 
  Country: None (occurrence: None)
  Receive Date: 20120725
  Receipt Date: 20120723
  Transmission Date: 20120928
  Serious: Yes (Other)
  Sender: FDA-Public Use
  Company Number: US-PFIZER INC-2012177583

PATIENT
  Sex: Male

DRUGS (2)
  1. RAPAMUNE [Suspect]
     Dosage: 0.5 MG, 1X/DAY
  2. RAPAMUNE [Suspect]
     Dosage: 1 MG, UNK
     Dates: start: 20110325

REACTIONS (2)
  - RENAL DISORDER [None]
  - DIABETES MELLITUS [None]
